FAERS Safety Report 9457774 (Version 1)
Quarter: 2013Q3

REPORT INFORMATION
  Report Type: Spontaneous
  Country: DE (occurrence: None)
  Receive Date: 20130812
  Receipt Date: 20130812
  Transmission Date: 20140515
  Serious: Yes (Life-Threatening, Hospitalization)
  Sender: FDA-Public Use
  Company Number: VAL_02675_2013

PATIENT
  Age: 56 Year
  Sex: Male

DRUGS (5)
  1. BENAZEPRIL (BENAZEPRIL-BENAZEPRIL HYDROCHLORIDE) [Suspect]
     Indication: HYPERTENSION
     Dosage: DF, ONCE DAILY
     Route: 048
     Dates: start: 201101
  2. METOPROLOL [Concomitant]
  3. SIMVASTATIN [Concomitant]
  4. PANTOZOL [Concomitant]
  5. CGP 57148CGO 57148-IMATINIB) [Suspect]
     Indication: CHRONIC MYELOID LEUKAEMIA
     Route: 048
     Dates: start: 20080505

REACTIONS (5)
  - Malaise [None]
  - Vomiting [None]
  - Dysphoria [None]
  - Angioedema [None]
  - Drug dependence [None]
